FAERS Safety Report 9334989 (Version 1)
Quarter: 2013Q2

REPORT INFORMATION
  Report Type: Spontaneous
  Country: AU (occurrence: AU)
  Receive Date: 20130606
  Receipt Date: 20130606
  Transmission Date: 20140414
  Serious: Yes (Hospitalization, Other)
  Sender: FDA-Public Use
  Company Number: AU-AMGEN-AUSSP2013039089

PATIENT
  Age: 75 Year
  Sex: Female

DRUGS (2)
  1. XGEVA [Suspect]
     Indication: BONE CANCER METASTATIC
     Dosage: 120 MG, QMO
     Dates: start: 20121024
  2. FASLODEX                           /01285001/ [Concomitant]

REACTIONS (3)
  - Neoplasm malignant [Unknown]
  - Bronchitis [Recovered/Resolved]
  - Malaise [Recovered/Resolved]
